FAERS Safety Report 6577591-8 (Version None)
Quarter: 2010Q1

REPORT INFORMATION
  Report Type: 
  Country: None (occurrence: None)
  Receive Date: 20100211
  Receipt Date: 20100203
  Transmission Date: 20100710
  Serious: Yes (Hospitalization)
  Sender: FDA-Public Use
  Company Number: US-ASTRAZENECA-2010SE04818

PATIENT
  Age: 69 Year
  Sex: Female

DRUGS (11)
  1. CRESTOR [Suspect]
     Indication: BLOOD CHOLESTEROL INCREASED
     Route: 048
     Dates: start: 20090401, end: 20091101
  2. METOPROLOL TARTRATE [Concomitant]
  3. OMEPRAZOLE [Concomitant]
  4. GENUVIA [Concomitant]
  5. LISINOPRIL [Concomitant]
     Dosage: 20/12.5 MG
  6. GLIMEPIRIDE [Concomitant]
  7. ROPINIROLE [Concomitant]
  8. ASPIRIN [Concomitant]
  9. NIASPAN [Concomitant]
  10. CENTRUM SILVER [Concomitant]
  11. FISH OIL [Concomitant]

REACTIONS (2)
  - BACK PAIN [None]
  - VASCULAR GRAFT [None]
